FAERS Safety Report 22173870 (Version 3)
Quarter: 2023Q2

REPORT INFORMATION
  Report Type: Spontaneous
  Country: None (occurrence: NZ)
  Receive Date: 20230404
  Receipt Date: 20230614
  Transmission Date: 20230722
  Serious: Yes (Other)
  Sender: FDA-Public Use
  Company Number: NZ-Ascend Therapeutics US, LLC-2139894

PATIENT
  Age: 52 Year
  Sex: Female

DRUGS (2)
  1. ESTROGEL [Suspect]
     Active Substance: ESTRADIOL
     Indication: Hormone replacement therapy
     Route: 061
  2. ESTRADIOL [Suspect]
     Active Substance: ESTRADIOL
     Route: 061

REACTIONS (2)
  - Wheezing [Not Recovered/Not Resolved]
  - Skin disorder [Unknown]
